FAERS Safety Report 14941479 (Version 1)
Quarter: 2018Q2

REPORT INFORMATION
  Report Type: Spontaneous
  Country: US (occurrence: US)
  Receive Date: 20180526
  Receipt Date: 20180526
  Transmission Date: 20180711
  Serious: No
  Sender: FDA-Public Use
  Company Number: US-TEVA-2018-US-895618

PATIENT
  Sex: Female

DRUGS (1)
  1. BALZIVA [Suspect]
     Active Substance: ETHINYL ESTRADIOL\NORETHINDRONE
     Indication: MENSTRUATION IRREGULAR
     Dosage: DOSE STRENGTH:  0.4/0.035
     Dates: start: 2012

REACTIONS (3)
  - Metrorrhagia [Unknown]
  - Muscle spasms [Unknown]
  - Drug dose omission [Unknown]

NARRATIVE: CASE EVENT DATE: 20180516
